FAERS Safety Report 13342692 (Version 2)
Quarter: 2017Q4

REPORT INFORMATION
  Report Type: Spontaneous
  Country: US (occurrence: US)
  Receive Date: 20170316
  Receipt Date: 20171016
  Transmission Date: 20180320
  Serious: Yes (Hospitalization, Other)
  Sender: FDA-Public Use
  Company Number: US-PFIZER INC-2017109288

PATIENT
  Age: 74 Year
  Sex: Female
  Weight: 84.37 kg

DRUGS (1)
  1. LYRICA [Suspect]
     Active Substance: PREGABALIN
     Indication: BACK PAIN
     Dosage: 75 MG, 2X/DAY [TAKES ONE IN THE AM AND ONE AT NIGHT]
     Route: 048
     Dates: start: 2010, end: 2016

REACTIONS (13)
  - Chills [Unknown]
  - Back pain [Recovering/Resolving]
  - Condition aggravated [Recovering/Resolving]
  - Withdrawal syndrome [Unknown]
  - Loss of personal independence in daily activities [Unknown]
  - Pain [Unknown]
  - Myocardial infarction [Unknown]
  - Fall [Recovering/Resolving]
  - Vomiting [Unknown]
  - Urinary incontinence [Unknown]
  - Muscle spasms [Unknown]
  - Gait disturbance [Unknown]
  - Stress [Unknown]

NARRATIVE: CASE EVENT DATE: 201502
